FAERS Safety Report 18865277 (Version 1)
Quarter: 2021Q1

REPORT INFORMATION
  Report Type: Spontaneous
  Country: US (occurrence: US)
  Receive Date: 20210208
  Receipt Date: 20210208
  Transmission Date: 20210420
  Serious: No
  Sender: FDA-Public Use
  Company Number: US-SUNOVION-2021SUN000298

PATIENT
  Sex: Male

DRUGS (1)
  1. LATUDA [Suspect]
     Active Substance: LURASIDONE HYDROCHLORIDE
     Dosage: UNK
     Route: 048

REACTIONS (9)
  - Somnolence [Unknown]
  - Weight increased [Unknown]
  - Abdominal pain [Unknown]
  - Pigmentation disorder [Unknown]
  - Waist circumference increased [Unknown]
  - Restlessness [Unknown]
  - Abdominal distension [Unknown]
  - Swelling face [Unknown]
  - Abdominal pain upper [Unknown]
